FAERS Safety Report 8045719-9 (Version None)
Quarter: 2012Q1

REPORT INFORMATION
  Report Type: 
  Country: None (occurrence: None)
  Receive Date: 20120113
  Receipt Date: 20120111
  Transmission Date: 20120608
  Serious: Yes (Hospitalization, Congenital Anomaly, Other)
  Sender: FDA-Public Use
  Company Number: US-PFIZER INC-2011280887

PATIENT
  Sex: Female

DRUGS (3)
  1. ZOLOFT [Suspect]
     Dosage: UNK
     Route: 064
     Dates: start: 20040425
  2. ZOLOFT [Suspect]
     Indication: DEPRESSION
     Dosage: 50 MG
     Route: 064
     Dates: start: 20030207
  3. ZOLOFT [Suspect]
     Dosage: 25 MG, UNK
     Route: 064
     Dates: start: 20041112

REACTIONS (11)
  - PLAGIOCEPHALY [None]
  - TORTICOLLIS [None]
  - MATERNAL EXPOSURE TIMING UNSPECIFIED [None]
  - ABDOMINAL HERNIA [None]
  - ANISOMETROPIA [None]
  - ASTIGMATISM [None]
  - CRANIOSYNOSTOSIS [None]
  - EYELID PTOSIS [None]
  - AMBLYOPIA [None]
  - JAUNDICE NEONATAL [None]
  - HYPERMETROPIA [None]
